FAERS Safety Report 19512249 (Version 1)
Quarter: 2021Q3

REPORT INFORMATION
  Report Type: Spontaneous
  Country: AT (occurrence: AT)
  Receive Date: 20210709
  Receipt Date: 20210709
  Transmission Date: 20211014
  Serious: Yes (Other)
  Sender: FDA-Public Use
  Company Number: AT-ASTELLAS-2021US024960

PATIENT
  Age: 68 Year
  Sex: Male

DRUGS (3)
  1. AMBISOME [Suspect]
     Active Substance: AMPHOTERICIN B
     Indication: CRYPTOCOCCOSIS
     Dosage: 150 MG (2 MG/KG), ONCE DAILY
     Route: 042
     Dates: start: 202008
  2. FLUCONAZOLE. [Concomitant]
     Active Substance: FLUCONAZOLE
     Indication: PRODUCT USED FOR UNKNOWN INDICATION
     Dosage: UNK UNK, UNKNOWN FREQ.
     Route: 065
  3. AMBISOME [Suspect]
     Active Substance: AMPHOTERICIN B
     Route: 065
     Dates: start: 202102

REACTIONS (6)
  - Drug intolerance [Unknown]
  - Headache [Unknown]
  - Nausea [Unknown]
  - Drug ineffective [Unknown]
  - Muscle spasms [Unknown]
  - Off label use [Recovered/Resolved]
